FAERS Safety Report 8964536 (Version 1)
Quarter: 2012Q4

REPORT INFORMATION
  Report Type: 
  Country: JP (occurrence: US)
  Receive Date: 20121213
  Receipt Date: 20121213
  Transmission Date: 20130627
  Serious: Yes (Other)
  Sender: FDA-Public Use
  Company Number: US-TEVA-339031USA

PATIENT
  Age: 61 Year
  Sex: Male

DRUGS (8)
  1. TREANDA [Suspect]
     Indication: B-CELL LYMPHOMA
     Route: 042
     Dates: start: 20110429, end: 20110916
  2. TREANDA [Suspect]
     Route: 042
     Dates: start: 20110526
  3. TREANDA [Suspect]
     Route: 042
     Dates: start: 20110623
  4. TREANDA [Suspect]
     Route: 042
     Dates: start: 20110526, end: 20110527
  5. TREANDA [Suspect]
     Route: 042
     Dates: start: 20110623, end: 20110624
  6. TREANDA [Suspect]
     Route: 042
     Dates: start: 20110721, end: 20110722
  7. TREANDA [Suspect]
     Route: 042
     Dates: start: 20110818, end: 20110819
  8. TREANDA [Suspect]
     Route: 042
     Dates: start: 20110915, end: 20110916

REACTIONS (2)
  - Angiopathy [Recovered/Resolved]
  - Wrong technique in drug usage process [Unknown]
